FAERS Safety Report 25283370 (Version 1)
Quarter: 2025Q2

REPORT INFORMATION
  Report Type: Spontaneous
  Country: CA (occurrence: CA)
  Receive Date: 20250508
  Receipt Date: 20250508
  Transmission Date: 20250717
  Serious: Yes (Other)
  Sender: PFIZER
  Company Number: CA-PFIZER INC-202500094557

PATIENT
  Age: 3 Day
  Sex: Male

DRUGS (9)
  1. HEPARIN SODIUM [Suspect]
     Active Substance: HEPARIN SODIUM
     Indication: Peripheral ischaemia
     Route: 041
  2. HEPARIN SODIUM [Suspect]
     Active Substance: HEPARIN SODIUM
     Route: 041
  3. ACETAMINOPHEN [Concomitant]
     Active Substance: ACETAMINOPHEN
  4. AMPICILLIN [Concomitant]
     Active Substance: AMPICILLIN
  5. CAFFEINE [Concomitant]
     Active Substance: CAFFEINE
  6. CEFAZOLIN [Concomitant]
     Active Substance: CEFAZOLIN
  7. GENTAMICIN [Concomitant]
     Active Substance: GENTAMICIN
  8. NITROGLYCERIN [Concomitant]
     Active Substance: NITROGLYCERIN
  9. PIPERACILLIN SODIUM\TAZOBACTAM SODIUM [Concomitant]
     Active Substance: PIPERACILLIN SODIUM\TAZOBACTAM SODIUM

REACTIONS (6)
  - Anti factor X activity increased [Recovered/Resolved]
  - Haemorrhage neonatal [Recovered/Resolved]
  - Patent ductus arteriosus [Recovered/Resolved]
  - Pulmonary haemorrhage neonatal [Recovered/Resolved]
  - Neonatal respiratory depression [Recovered/Resolved]
  - Off label use [Unknown]
